FAERS Safety Report 22247006 (Version 2)
Quarter: 2023Q2

REPORT INFORMATION
  Report Type: Spontaneous
  Country: IT (occurrence: IT)
  Receive Date: 20230424
  Receipt Date: 20230502
  Transmission Date: 20230722
  Serious: Yes (Other)
  Sender: FDA-Public Use
  Company Number: IT-TEVA-2023-IT-2880456

PATIENT
  Age: 69 Year
  Sex: Female

DRUGS (19)
  1. PREDNISONE [Suspect]
     Active Substance: PREDNISONE
     Indication: Diffuse large B-cell lymphoma
     Dosage: AS R-COMP REGIMEN WITH CYCLOPHOSPHAMIDE, VINCRISTINE, DOXORUBICIN LIPOSOMAL AND RITUXIMAB
     Route: 065
  2. PREDNISONE [Suspect]
     Active Substance: PREDNISONE
     Dosage: WITH LENALIDOMIDE
     Route: 065
  3. VINCRISTINE [Suspect]
     Active Substance: VINCRISTINE
     Indication: Diffuse large B-cell lymphoma
     Dosage: AS R-COMP REGIMEN WITH PREDNISONE, CYCLOPHOSPHAMIDE, DOXORUBICIN LIPOSOMAL AND RITUXIMAB
     Route: 065
  4. FLUDARABINE [Suspect]
     Active Substance: FLUDARABINE PHOSPHATE
     Indication: Diffuse large B-cell lymphoma
     Dosage: WITH CYCLOPHOSPHAMIDE
     Route: 065
  5. ETOPOSIDE [Suspect]
     Active Substance: ETOPOSIDE
     Indication: Diffuse large B-cell lymphoma
     Dosage: AS FEAM REGIMEN WITH FOTEMUSTINE, CYTARABINE AND MELPHALAN
     Route: 065
  6. MELPHALAN [Suspect]
     Active Substance: MELPHALAN
     Indication: Diffuse large B-cell lymphoma
     Dosage: AS FEAM REGIMEN WITH FOTEMUSTINE, CYTARABINE AND ETOPOSIDE
     Route: 065
  7. OXALIPLATIN [Suspect]
     Active Substance: OXALIPLATIN
     Indication: Diffuse large B-cell lymphoma
     Dosage: AS R-DHAOX REGIMEN WITH RITUXIMAB, DEXAMETHASONE AND CYTARABINE
     Route: 065
  8. RITUXIMAB [Suspect]
     Active Substance: RITUXIMAB
     Indication: Diffuse large B-cell lymphoma
     Dosage: AS R-COMP REGIMEN WITH PREDNISONE, CYCLOPHOSPHAMIDE, VINCRISTINE, DOXORUBICIN LIPOSOMAL
     Route: 065
  9. RITUXIMAB [Suspect]
     Active Substance: RITUXIMAB
     Dosage: AS R-DHAOX REGIMEN WITH DEXAMETHASONE, CYTARABINE AND OXALIPLATIN
     Route: 065
  10. CYCLOPHOSPHAMIDE [Suspect]
     Active Substance: CYCLOPHOSPHAMIDE
     Indication: Diffuse large B-cell lymphoma
     Dosage: AS R-COMP REGIMEN WITH PREDNISONE, VINCRISTINE, DOXORUBICIN LIPOSOMAL AND RITUXIMAB
     Route: 065
  11. CYCLOPHOSPHAMIDE [Suspect]
     Active Substance: CYCLOPHOSPHAMIDE
     Indication: Diffuse large B-cell lymphoma
     Dosage: WITH FLUDARABINE
     Route: 065
  12. DOXORUBICIN [Suspect]
     Active Substance: DOXORUBICIN
     Indication: Diffuse large B-cell lymphoma
     Dosage: AS R-COMP REGIMEN WITH PREDNISONE, CYCLOPHOSPHAMIDE, VINCRISTINE, AND RITUXIMAB
     Route: 065
  13. DEXAMETHASONE [Suspect]
     Active Substance: DEXAMETHASONE
     Indication: Diffuse large B-cell lymphoma
     Dosage: AS R-DHAOX REGIMEN WITH RITUXIMAB, CYTARABINE AND OXALIPLATIN
     Route: 065
  14. CYTARABINE [Suspect]
     Active Substance: CYTARABINE
     Indication: Diffuse large B-cell lymphoma
     Dosage: AS R-DHAOX REGIMEN WITH RITUXIMAB, DEXAMETHASONE AND OXALIPLATIN
     Route: 065
  15. CYTARABINE [Suspect]
     Active Substance: CYTARABINE
     Dosage: AS FEAM REGIMEN WITH FOTEMUSTINE, ETOPOSIDE AND MELPHALAN
     Route: 065
  16. CYTARABINE [Suspect]
     Active Substance: CYTARABINE
     Dosage: AS HAM REGIMEN WITH MITOXANTRONE
     Route: 065
  17. FOTEMUSTINE [Suspect]
     Active Substance: FOTEMUSTINE
     Indication: Diffuse large B-cell lymphoma
     Dosage: AS FEAM REGIMEN WITH ETOPOSIDE, CYTARABINE AND MELPHALAN
     Route: 065
  18. MITOXANTRONE [Suspect]
     Active Substance: MITOXANTRONE HYDROCHLORIDE
     Indication: Diffuse large B-cell lymphoma
     Dosage: AS HAM REGIMEN WITH CYTARABINE
     Route: 065
  19. LENALIDOMIDE [Suspect]
     Active Substance: LENALIDOMIDE
     Indication: Diffuse large B-cell lymphoma
     Dosage: 10 MG/DAY FOR 3 WEEKS IN CYCLES.
     Route: 065
     Dates: start: 2018

REACTIONS (2)
  - Pancytopenia [Unknown]
  - Acute myeloid leukaemia [Unknown]
